FAERS Safety Report 11190630 (Version 3)
Quarter: 2015Q4

REPORT INFORMATION
  Report Type: Spontaneous
  Country: JP (occurrence: JP)
  Receive Date: 20150615
  Receipt Date: 20151104
  Transmission Date: 20160304
  Serious: No
  Sender: FDA-Public Use
  Company Number: JP-EISAI MEDICAL RESEARCH-EC-2015-007677

PATIENT
  Age: 76 Year
  Sex: Female
  Weight: 50.5 kg

DRUGS (4)
  1. MARZULENE [Concomitant]
     Active Substance: SODIUM GUALENATE
     Indication: GASTRITIS
     Dosage: UNKNOWN
     Route: 048
     Dates: start: 20150609
  2. PARIET [Suspect]
     Active Substance: RABEPRAZOLE SODIUM
     Indication: ABDOMINAL PAIN UPPER
     Route: 048
     Dates: start: 20150609, end: 20150612
  3. PARIET [Suspect]
     Active Substance: RABEPRAZOLE SODIUM
     Indication: GASTROOESOPHAGEAL REFLUX DISEASE
     Route: 048
     Dates: start: 20110117, end: 20110123
  4. PARIET [Suspect]
     Active Substance: RABEPRAZOLE SODIUM
     Indication: HELICOBACTER TEST POSITIVE
     Route: 048
     Dates: start: 20150527, end: 20150606

REACTIONS (1)
  - Hyperkalaemia [Unknown]

NARRATIVE: CASE EVENT DATE: 20150609
